FAERS Safety Report 4805430-1 (Version None)
Quarter: 2005Q4

REPORT INFORMATION
  Report Type: 
  Country: None (occurrence: None)
  Receive Date: 20051018
  Receipt Date: 20051005
  Transmission Date: 20060501
  Serious: Yes (Hospitalization)
  Sender: FDA-Public Use
  Company Number: 2004203767ES

PATIENT
  Age: 58 Year
  Sex: Male

DRUGS (6)
  1. XALATAN [Suspect]
     Indication: GLAUCOMA
     Dosage: 1 DROP (1 IN 1 D), OPHTHALMIC
     Route: 047
     Dates: start: 20040101, end: 20040201
  2. VERNIES (GLYCERYL TRINITRATE) [Concomitant]
  3. UNIKET (ISOSORBIDE MONONITRATE) [Concomitant]
  4. AUGMENTIN '125' [Concomitant]
  5. EPROSARTAN (EPROSARTAN) [Concomitant]
  6. ANGIOTENSIN II ANTAGONISTS (ANGIOTENSIN II ANTAGONISTS) [Concomitant]

REACTIONS (19)
  - ARTERIOSPASM CORONARY [None]
  - ATRIOVENTRICULAR BLOCK [None]
  - BRADYCARDIA [None]
  - CARDIAC ARREST [None]
  - CARDIOPULMONARY FAILURE [None]
  - CONDITION AGGRAVATED [None]
  - CORONARY ARTERY OCCLUSION [None]
  - DRUG HYPERSENSITIVITY [None]
  - ELECTROCARDIOGRAM ST SEGMENT ELEVATION [None]
  - HYPOTENSION [None]
  - LOSS OF CONSCIOUSNESS [None]
  - MYOCARDIAL ISCHAEMIA [None]
  - PAIN [None]
  - PRINZMETAL ANGINA [None]
  - RESPIRATORY ARREST [None]
  - SYNCOPE [None]
  - VASOSPASM [None]
  - VENTRICULAR FIBRILLATION [None]
  - VENTRICULAR TACHYCARDIA [None]
